FAERS Safety Report 17538985 (Version 2)
Quarter: 2020Q1

REPORT INFORMATION
  Report Type: Spontaneous
  Country: US (occurrence: US)
  Receive Date: 20200313
  Receipt Date: 20200318
  Transmission Date: 20200409
  Serious: No
  Sender: FDA-Public Use
  Company Number: US-JNJFOC-20200310670

PATIENT
  Age: 48 Year
  Sex: Female
  Weight: 127.12 kg

DRUGS (3)
  1. REMICADE [Suspect]
     Active Substance: INFLIXIMAB
     Indication: CROHN^S DISEASE
     Route: 042
     Dates: start: 201701, end: 20180921
  2. FLUTICASONE. [Concomitant]
     Active Substance: FLUTICASONE
     Indication: MULTIPLE ALLERGIES
  3. LEVOCETIRIZINE [Concomitant]
     Active Substance: LEVOCETIRIZINE
     Indication: MULTIPLE ALLERGIES

REACTIONS (8)
  - Product dose omission [Unknown]
  - Mood swings [Unknown]
  - Depression [Unknown]
  - Infectious mononucleosis [Unknown]
  - Ill-defined disorder [Unknown]
  - Immune system disorder [Unknown]
  - Weight fluctuation [Unknown]
  - Fatigue [Unknown]

NARRATIVE: CASE EVENT DATE: 201703
